FAERS Safety Report 7470575-7 (Version None)
Quarter: 2011Q2

REPORT INFORMATION
  Report Type: 
  Country: None (occurrence: None)
  Receive Date: 20110429
  Receipt Date: 20110414
  Transmission Date: 20111010
  Serious: Yes (Other)
  Sender: FDA-Public Use
  Company Number: 030798

PATIENT
  Sex: Male
  Weight: 98 kg

DRUGS (14)
  1. CHLORTHALIDONE [Concomitant]
  2. PANTOPRAZOLE [Concomitant]
  3. ACETAMINOPHEN [Concomitant]
  4. QUESTRAN [Concomitant]
  5. AMITRIPTYLINE HCL [Concomitant]
  6. SYMBICORT [Concomitant]
  7. STATEX [Concomitant]
  8. ZOPICLONE [Concomitant]
  9. FENTANYL [Concomitant]
  10. VASOTEC [Concomitant]
  11. CIMZIA [Suspect]
     Indication: CROHN'S DISEASE
     Dosage: 400 MG 1X/2 WEEKS, STUDY C87085: AT WEEK 0,2 AD 4. SUBCUTANEOUS, 400 MG 1X/MONTH, STUDY C87085 SUBCU
     Route: 058
  12. ACCOMIN MULTIVITAMIN [Concomitant]
  13. NORVASC [Concomitant]
  14. GRAVOL TAB [Concomitant]

REACTIONS (1)
  - PNEUMONIA [None]
